FAERS Safety Report 7388019-2 (Version None)
Quarter: 2011Q1

REPORT INFORMATION
  Report Type: 
  Country: None (occurrence: None)
  Receive Date: 20110322
  Receipt Date: 20110310
  Transmission Date: 20110831
  Serious: Yes (Hospitalization, Disabling)
  Sender: FDA-Public Use
  Company Number: 005775

PATIENT
  Sex: Female
  Weight: 64 kg

DRUGS (13)
  1. PANTOZOL /01263202/ [Concomitant]
  2. DICLOFENAC [Concomitant]
  3. PREDNISOLON /00016201/ [Concomitant]
  4. DERKISTOL [Concomitant]
  5. MAGNESIUM VERLA /02089401/ [Concomitant]
  6. SULFASALAZINE [Concomitant]
  7. PROMETHAZINE [Concomitant]
  8. METEX [Concomitant]
  9. CALCIUM W/VITAMIN D /00188401/ [Concomitant]
  10. RANITIC [Concomitant]
  11. CERTOLIZUMAB PEGOL (CERTOLIZUMAB PEGOL) [Suspect]
     Indication: RHEUMATOID ARTHRITIS
     Dosage: SEE IMAGE
     Route: 058
     Dates: start: 20091126, end: 20100107
  12. FOLIC ACID [Concomitant]
  13. NOVAMINSULFON [Concomitant]

REACTIONS (5)
  - NAUSEA [None]
  - ACQUIRED DIAPHRAGMATIC EVENTRATION [None]
  - INTERVERTEBRAL DISC PROTRUSION [None]
  - DISSEMINATED TUBERCULOSIS [None]
  - ASTHMA [None]
